FAERS Safety Report 13851325 (Version 4)
Quarter: 2017Q3

REPORT INFORMATION
  Report Type: Spontaneous
  Country: US (occurrence: US)
  Receive Date: 20170809
  Receipt Date: 20170914
  Transmission Date: 20171127
  Serious: Yes (Other)
  Sender: FDA-Public Use
  Company Number: US-PFIZER INC-2017341272

PATIENT
  Age: 46 Year
  Sex: Female
  Weight: 122.45 kg

DRUGS (45)
  1. LYRICA [Suspect]
     Active Substance: PREGABALIN
     Indication: COMPLEX REGIONAL PAIN SYNDROME
     Dosage: 50 MG, 2 AT BEDTIME
     Route: 048
  2. LYRICA [Suspect]
     Active Substance: PREGABALIN
     Dosage: 75 MG, UNK
     Route: 048
  3. NORCO [Concomitant]
     Active Substance: ACETAMINOPHEN\HYDROCODONE BITARTRATE
     Indication: FIBROMYALGIA
     Dosage: 10/325, ONE EVERY FOUR HOURS
  4. NORCO [Concomitant]
     Active Substance: ACETAMINOPHEN\HYDROCODONE BITARTRATE
     Indication: ARTHRITIS
  5. SYNTHROID [Concomitant]
     Active Substance: LEVOTHYROXINE SODIUM
     Indication: THYROID DISORDER
     Dosage: 100 UG, ONCE A DAY
     Route: 048
  6. ELAVIL [Concomitant]
     Active Substance: AMITRIPTYLINE HYDROCHLORIDE
     Indication: FIBROMYALGIA
     Dosage: 100 MG, AT BEDTIME
  7. FLEXERIL [Concomitant]
     Active Substance: CYCLOBENZAPRINE HYDROCHLORIDE
     Indication: FIBROMYALGIA
     Dosage: ONE EVERY 8 HOURS AS NEEDED
  8. KLOR-CON M20 [Concomitant]
     Active Substance: POTASSIUM CHLORIDE
     Dosage: 20 MEQ, 2X/DAY
     Route: 048
     Dates: start: 20161129
  9. EPINEPHRINE. [Concomitant]
     Active Substance: EPINEPHRINE
     Dosage: 0.3MG/0.3ML, 1 DF, DAILY AS NEEDED
     Dates: start: 20170814
  10. ACETAMINOPHEN AND CODEINE [Concomitant]
     Active Substance: ACETAMINOPHEN\CODEINE PHOSPHATE
     Dosage: 2 DF, FOUR TIMES DAILY AS NEEDED [CODEINE PHOSPHATE: 30MG/PARACETAMOL: 300MG]
     Route: 048
     Dates: start: 20170518
  11. ZOFRAN [Concomitant]
     Active Substance: ONDANSETRON HYDROCHLORIDE
     Dosage: 8 MG, THREE TIMES DAILY AS NEEDED
     Route: 048
     Dates: start: 20170307
  12. PROMETHAZINE HCL [Concomitant]
     Active Substance: PROMETHAZINE HYDROCHLORIDE
     Dosage: 25 MG, EVERY FOUR HOURS AS NEEDED
     Route: 048
     Dates: start: 20151123
  13. LISINOPRIL. [Concomitant]
     Active Substance: LISINOPRIL
     Dosage: 10 MG, DAILY
     Route: 048
  14. EPIPEN [Concomitant]
     Active Substance: EPINEPHRINE
     Dosage: 0.3MG/0.3ML, 1 DF, DAILY AS NEEDED
     Dates: start: 20170720
  15. LYRICA [Suspect]
     Active Substance: PREGABALIN
     Indication: FIBROMYALGIA
     Dosage: 50 MG EVERY 4 HOURS
     Route: 048
  16. SINGULAIR [Concomitant]
     Active Substance: MONTELUKAST SODIUM
     Indication: HYPERSENSITIVITY
     Dosage: 10 MG, ONCE A DAY
  17. OMEPRAZOLE. [Concomitant]
     Active Substance: OMEPRAZOLE
     Indication: GASTROOESOPHAGEAL REFLUX DISEASE
     Dosage: 40 MG, 2X/DAY
     Route: 048
     Dates: start: 20170220
  18. PERFOROMIST [Concomitant]
     Active Substance: FORMOTEROL FUMARATE DIHYDRATE
     Dosage: 20 MCG/2ML, 1 DF, 2X/DAY
     Route: 055
     Dates: start: 20170720
  19. PROAIR HFA [Concomitant]
     Active Substance: ALBUTEROL SULFATE
     Dosage: 108 MCG/ACT, 2 PUFFS FOUR TIMES DAILY, AS NEEDED
     Route: 055
     Dates: start: 20170626
  20. PROVENTIL HFA [Concomitant]
     Active Substance: ALBUTEROL SULFATE
     Dosage: 108 MCG/ACT, 2 PUFF THREE TIMES DAILY, AS NEEDED
     Route: 055
     Dates: start: 20160523
  21. LYRICA [Suspect]
     Active Substance: PREGABALIN
     Dosage: 100 MG, 3X/DAY
     Route: 048
     Dates: start: 20170626
  22. ZYRTEC [Concomitant]
     Active Substance: CETIRIZINE HYDROCHLORIDE
     Indication: HYPERSENSITIVITY
     Dosage: 10 MG, ONCE A DAY
  23. FLEXERIL [Concomitant]
     Active Substance: CYCLOBENZAPRINE HYDROCHLORIDE
     Indication: COMPLEX REGIONAL PAIN SYNDROME
     Dosage: ONE AT BEDTIME
  24. VITAMIN D [Concomitant]
     Active Substance: CHOLECALCIFEROL
     Dosage: 1000 IU, ONCE A DAY
     Dates: start: 20170720
  25. HYDROCODONE/ACETAMINOPHEN [Concomitant]
     Active Substance: ACETAMINOPHEN\HYDROCODONE
     Dosage: 2 DF, 3X/DAY [HYDROCODONE BITARTRATE: 10MG, PARACETAMOL: 325MG]
     Route: 048
     Dates: start: 20170818
  26. ERGOCALCIFEROL. [Concomitant]
     Active Substance: ERGOCALCIFEROL
     Dosage: 50000 IU, WEEKLY
     Route: 048
     Dates: start: 20170131
  27. AMITRIPTYLINE HCL [Concomitant]
     Active Substance: AMITRIPTYLINE
     Dosage: 100 MG, DAILY
     Route: 048
     Dates: start: 20170116
  28. MECLIZINE HCL [Concomitant]
     Active Substance: MECLIZINE HYDROCHLORIDE
     Dosage: 25 MG, 3X/DAY
     Route: 048
     Dates: start: 20160719
  29. ELAVIL [Concomitant]
     Active Substance: AMITRIPTYLINE HYDROCHLORIDE
     Indication: MIGRAINE
  30. NASACORT ALLERGY 24HR [Concomitant]
     Active Substance: TRIAMCINOLONE ACETONIDE
     Dosage: 55MCG/ACT, 2 SPRAY, 2X/DAY
     Route: 045
     Dates: start: 20170626
  31. SUDAFED [Concomitant]
     Active Substance: PSEUDOEPHEDRINE HYDROCHLORIDE
     Dosage: EVERY 6 HOURS AS NEEDED
  32. VITAMIN D [Concomitant]
     Active Substance: CHOLECALCIFEROL
     Indication: VITAMIN D DEFICIENCY
     Dosage: 5000 IU, ONCE A WEEK
  33. XANAX [Concomitant]
     Active Substance: ALPRAZOLAM
     Dosage: 0.25 MG, 3X/DAY
     Route: 048
     Dates: start: 20170626
  34. LEVOTHYROXINE SODIUM. [Concomitant]
     Active Substance: LEVOTHYROXINE SODIUM
     Dosage: 125 UG, DAILY
     Route: 048
     Dates: start: 20170523
  35. NORCO [Concomitant]
     Active Substance: ACETAMINOPHEN\HYDROCODONE BITARTRATE
     Indication: COMPLEX REGIONAL PAIN SYNDROME
     Dosage: 10/325, TWO AT BED TIME
  36. SUDAFED [Concomitant]
     Active Substance: PSEUDOEPHEDRINE HYDROCHLORIDE
     Dosage: 60 MG, 3X/DAY
     Route: 048
     Dates: start: 20170626
  37. LASIX [Concomitant]
     Active Substance: FUROSEMIDE
     Dosage: 40 MG, 2X/DAY
     Route: 048
     Dates: start: 20150625
  38. LYRICA [Suspect]
     Active Substance: PREGABALIN
     Indication: ARTHRITIS
     Dosage: 100 MG, 2X/DAY
     Route: 048
  39. SUDAFED [Concomitant]
     Active Substance: PSEUDOEPHEDRINE HYDROCHLORIDE
     Indication: SINUS DISORDER
     Dosage: 60 MG, TWO AT BEDTIME
  40. ALVESCO [Concomitant]
     Active Substance: CICLESONIDE
     Dosage: 160 MCG/ ACT, 2 PUFFS, 2X/DAY
     Route: 055
     Dates: start: 20170720
  41. MONTELUKAST SODIUM. [Concomitant]
     Active Substance: MONTELUKAST SODIUM
     Dosage: 10 MG, DAILY
     Route: 048
     Dates: start: 20170720
  42. NICODERM CQ [Concomitant]
     Active Substance: NICOTINE
     Dosage: 21 MG, DAILY
     Route: 062
     Dates: start: 20170626
  43. CYCLOBENZAPRINE HCL [Concomitant]
     Active Substance: CYCLOBENZAPRINE HYDROCHLORIDE
     Dosage: 10 MG, 3X/DAY
     Route: 048
     Dates: start: 20170328
  44. PRAVASTATIN SODIUM. [Concomitant]
     Active Substance: PRAVASTATIN SODIUM
     Dosage: 20 MG, DAILY
     Route: 048
  45. ALBUTEROL SULFATE. [Concomitant]
     Active Substance: ALBUTEROL SULFATE
     Dosage: 2.5 MG/3ML, 1 DF, EVERY FOUR HOURS AS NEEDED
     Route: 055
     Dates: start: 20141215

REACTIONS (14)
  - Anticholinergic syndrome [Unknown]
  - Peripheral swelling [Not Recovered/Not Resolved]
  - Product use issue [Unknown]
  - Paraesthesia [Not Recovered/Not Resolved]
  - Thinking abnormal [Unknown]
  - Sedation [Not Recovered/Not Resolved]
  - Fatigue [Unknown]
  - Therapeutic response unexpected [Unknown]
  - Hypoaesthesia [Not Recovered/Not Resolved]
  - Slow response to stimuli [Unknown]
  - Feeling abnormal [Unknown]
  - Fine motor skill dysfunction [Unknown]
  - Pre-existing condition improved [Unknown]
  - Micturition frequency decreased [Not Recovered/Not Resolved]
